FAERS Safety Report 17885252 (Version 1)
Quarter: 2020Q2

REPORT INFORMATION
  Report Type: Spontaneous
  Country: US (occurrence: US)
  Receive Date: 20200611
  Receipt Date: 20200611
  Transmission Date: 20200714
  Serious: Yes (Life-Threatening)
  Sender: FDA-Public Use
  Company Number: None

PATIENT
  Age: 71 Year
  Sex: Male
  Weight: 81 kg

DRUGS (1)
  1. METFORMIN [Suspect]
     Active Substance: METFORMIN HYDROCHLORIDE
     Indication: TYPE 2 DIABETES MELLITUS
     Route: 048

REACTIONS (5)
  - Lymphadenopathy [None]
  - Recalled product administered [None]
  - Mass [None]
  - Myocardial infarction [None]
  - Product quality issue [None]

NARRATIVE: CASE EVENT DATE: 20200515
